FAERS Safety Report 9698556 (Version 1)
Quarter: 2013Q4

REPORT INFORMATION
  Report Type: Spontaneous
  Country: NL (occurrence: NL)
  Receive Date: 20131120
  Receipt Date: 20131120
  Transmission Date: 20140711
  Serious: Yes (Other)
  Sender: FDA-Public Use
  Company Number: NL-PFIZER INC-2013329164

PATIENT
  Age: 63 Year
  Sex: Female

DRUGS (4)
  1. VENLAFAXINE HCL [Suspect]
     Indication: DEPRESSION
     Dosage: 37.5 MG, 1X/DAY
     Dates: start: 2012
  2. SEROQUEL [Interacting]
     Indication: DEPRESSION
     Dosage: 1 DF, 1X/DAY
     Dates: start: 2012
  3. PANTOPRAZOL [Concomitant]
     Dosage: 20 MG, 1X/DAY
     Dates: start: 2012
  4. METOPROLOL [Concomitant]
     Dosage: 100 MG, 1X/DAY

REACTIONS (5)
  - Drug administration error [Recovering/Resolving]
  - Drug interaction [Recovering/Resolving]
  - Dizziness [Recovering/Resolving]
  - Syncope [Recovering/Resolving]
  - Fall [Recovering/Resolving]
